FAERS Safety Report 4588439-5 (Version None)
Quarter: 2005Q1

REPORT INFORMATION
  Report Type: 
  Country: None (occurrence: None)
  Receive Date: 20050216
  Receipt Date: 20050216
  Transmission Date: 20050727
  Serious: No
  Sender: FDA-Public Use
  Company Number: None

PATIENT
  Age: 35 Year
  Sex: Female

DRUGS (2)
  1. KLONOPIN [Suspect]
     Indication: ANXIETY
     Dosage: 0.5 MG ONE Q 6 H
     Dates: start: 20010101
  2. KLONOPIN [Suspect]
     Indication: PANIC ATTACK
     Dosage: 0.5 MG ONE Q 6 H
     Dates: start: 20010101

REACTIONS (4)
  - ANXIETY [None]
  - PANIC ATTACK [None]
  - PHARMACEUTICAL PRODUCT COMPLAINT [None]
  - THERAPEUTIC PRODUCT INEFFECTIVE [None]
